FAERS Safety Report 24245410 (Version 1)
Quarter: 2024Q3

REPORT INFORMATION
  Report Type: Report from Study
  Country: JP (occurrence: None)
  Receive Date: 20240824
  Receipt Date: 20240824
  Transmission Date: 20241016
  Serious: Yes (Life-Threatening)
  Sender: ASTRAZENECA
  Company Number: 2024A189984

PATIENT
  Age: 72 Year
  Sex: Male
  Weight: 69 kg

DRUGS (3)
  1. IMFINZI [Suspect]
     Active Substance: DURVALUMAB
     Indication: Bile duct cancer
     Route: 041
     Dates: start: 20231002, end: 20231002
  2. GEMCITABINE [Suspect]
     Active Substance: GEMCITABINE
     Indication: Bile duct cancer
     Route: 065
     Dates: start: 20231002, end: 20231002
  3. CISPLATIN [Suspect]
     Active Substance: CISPLATIN
     Indication: Bile duct cancer
     Route: 065
     Dates: start: 20231002, end: 20231002

REACTIONS (1)
  - Meningitis bacterial [Recovered/Resolved]

NARRATIVE: CASE EVENT DATE: 20231005
